FAERS Safety Report 15604262 (Version 1)
Quarter: 2018Q4

REPORT INFORMATION
  Report Type: Spontaneous
  Country: BR (occurrence: BR)
  Receive Date: 20181110
  Receipt Date: 20181110
  Transmission Date: 20190205
  Serious: Yes (Death)
  Sender: FDA-Public Use
  Company Number: BR-ABBVIE-18K-020-2551291-00

PATIENT
  Sex: Female

DRUGS (1)
  1. VENCLEXTA [Suspect]
     Active Substance: VENETOCLAX
     Indication: PRODUCT USED FOR UNKNOWN INDICATION
     Dosage: PATIENT TOOK 17 PILLS OF VENCLEXTA
     Route: 048

REACTIONS (5)
  - Inappropriate schedule of product administration [Fatal]
  - Cardiac failure [Fatal]
  - Septic shock [Fatal]
  - Incorrect dose administered [Fatal]
  - Blood pressure decreased [Fatal]
